FAERS Safety Report 5067719-3 (Version None)
Quarter: 2006Q3

REPORT INFORMATION
  Report Type: 
  Country: None (occurrence: None)
  Receive Date: 20060731
  Receipt Date: 20060707
  Transmission Date: 20061208
  Serious: Yes (Hospitalization)
  Sender: FDA-Public Use
  Company Number: CIO06002711

PATIENT
  Age: 72 Year
  Sex: Male
  Weight: 108.8 kg

DRUGS (4)
  1. METAMUCIL, FLAVOR UNKNOWN(PSYLLIUM HYDROPHILIC [Suspect]
     Indication: BLOOD CHOLESTEROL INCREASED
     Dosage: 2 WAFER, 3/DAY, ORAL
     Route: 048
     Dates: start: 20060212, end: 20060305
  2. METAMUCIL, VERSION/TEXTURE/FLAVOR UNKNOWN (PSYLLIUM [Suspect]
     Dosage: ORAL
     Route: 048
  3. ZETIA [Concomitant]
  4. NORVASC [Concomitant]

REACTIONS (22)
  - ABDOMINAL DISCOMFORT [None]
  - ABDOMINAL DISTENSION [None]
  - ABDOMINAL PAIN LOWER [None]
  - BREATH SOUNDS ABNORMAL [None]
  - COLONIC OBSTRUCTION [None]
  - CONSTIPATION [None]
  - DIARRHOEA [None]
  - DISCOMFORT [None]
  - DIVERTICULUM [None]
  - DRUG ADMINISTRATION ERROR [None]
  - FAECES DISCOLOURED [None]
  - FAECES HARD [None]
  - INGUINAL HERNIA [None]
  - LEUKOCYTOSIS [None]
  - LOSS OF CONSCIOUSNESS [None]
  - OXYGEN SATURATION DECREASED [None]
  - PLATELET COUNT INCREASED [None]
  - PYREXIA [None]
  - RESPIRATORY RATE INCREASED [None]
  - SKIN WARM [None]
  - THERAPEUTIC PRODUCT INEFFECTIVE [None]
  - UNEVALUABLE EVENT [None]
